FAERS Safety Report 10301096 (Version 1)
Quarter: 2014Q3

REPORT INFORMATION
  Report Type: Spontaneous
  Country: US (occurrence: None)
  Receive Date: 20140708
  Receipt Date: 20140708
  Transmission Date: 20150326
  Serious: Yes (Other)
  Sender: FDA-Public Use
  Company Number: None

PATIENT
  Age: 57 Year
  Sex: Male

DRUGS (1)
  1. APOKYN [Suspect]
     Active Substance: APOMORPHINE HYDROCHLORIDE
     Indication: PARKINSON^S DISEASE
     Dosage: 0.6ML, UP TO 6 PER DAY, SUBCUTANEOUS
     Route: 058
     Dates: start: 20140501, end: 20140707

REACTIONS (1)
  - Fall [None]

NARRATIVE: CASE EVENT DATE: 20140630
